FAERS Safety Report 8189573-3 (Version None)
Quarter: 2012Q1

REPORT INFORMATION
  Report Type: 
  Country: None (occurrence: None)
  Receive Date: 20120307
  Receipt Date: 20120228
  Transmission Date: 20120608
  Serious: Yes (Other)
  Sender: FDA-Public Use
  Company Number: US-BAYER-2011-123174

PATIENT
  Age: 23 Year
  Sex: Female
  Weight: 92.971 kg

DRUGS (2)
  1. BEYAZ [Suspect]
     Indication: OVARIAN CYST
     Dosage: UNK
     Route: 048
     Dates: start: 20100527, end: 20111214
  2. BEYAZ [Suspect]
     Indication: ACNE

REACTIONS (3)
  - DYSPNOEA [None]
  - MUSCULOSKELETAL CHEST PAIN [None]
  - PULMONARY EMBOLISM [None]
